FAERS Safety Report 9500598 (Version 1)
Quarter: 2013Q1

REPORT INFORMATION
  Report Type: Spontaneous
  Country: US (occurrence: None)
  Receive Date: 20130107
  Receipt Date: 20130107
  Transmission Date: 20140127
  Serious: No
  Sender: FDA-Public Use
  Company Number: PHEH2012US023233

PATIENT
  Age: 37 Year
  Sex: Male

DRUGS (2)
  1. GILENYA [Suspect]
     Indication: MULTIPLE SCLEROSIS
     Route: 048
     Dates: start: 201208
  2. VITAMIN D (ERGOCALCIFEROL) [Concomitant]

REACTIONS (5)
  - Visual impairment [None]
  - Photophobia [None]
  - Feeling abnormal [None]
  - Vision blurred [None]
  - Eye pain [None]
